FAERS Safety Report 14257015 (Version 1)
Quarter: 2017Q4

REPORT INFORMATION
  Report Type: Spontaneous
  Country: US (occurrence: US)
  Receive Date: 20171206
  Receipt Date: 20171206
  Transmission Date: 20180321
  Serious: Yes (Hospitalization)
  Sender: FDA-Public Use
  Company Number: US-EXELIXIS-CABO-17011531

PATIENT
  Sex: Female

DRUGS (1)
  1. CABOMETYX [Suspect]
     Active Substance: CABOZANTINIB S-MALATE
     Indication: THROAT CANCER
     Dosage: UNK
     Dates: end: 201711

REACTIONS (3)
  - Dysphagia [Unknown]
  - Off label use [Unknown]
  - Pneumonia [Unknown]

NARRATIVE: CASE EVENT DATE: 201711
